FAERS Safety Report 4462344-7 (Version None)
Quarter: 2004Q3

REPORT INFORMATION
  Report Type: 
  Country: None (occurrence: None)
  Receive Date: 20040924
  Receipt Date: 20040913
  Transmission Date: 20050211
  Serious: Yes (Hospitalization, Other)
  Sender: FDA-Public Use
  Company Number: SUS1-2004-00560

PATIENT
  Sex: Female

DRUGS (2)
  1. AGRYLIN [Suspect]
     Indication: THROMBOCYTHAEMIA
     Dosage: 0.5 MG
     Dates: start: 19990101, end: 20040501
  2. HYDREA [Concomitant]

REACTIONS (6)
  - CARPAL TUNNEL SYNDROME [None]
  - CHEST PAIN [None]
  - HAEMOGLOBIN DECREASED [None]
  - HAEMORRHAGE [None]
  - MYELOFIBROSIS [None]
  - NEUROPATHY PERIPHERAL [None]
